FAERS Safety Report 22155237 (Version 2)
Quarter: 2023Q2

REPORT INFORMATION
  Report Type: Report from Study
  Country: CN (occurrence: CN)
  Receive Date: 20230330
  Receipt Date: 20230414
  Transmission Date: 20230721
  Serious: Yes (Hospitalization)
  Sender: FDA-Public Use
  Company Number: CN-002147023-NVSC2023CN070983

PATIENT
  Age: 65 Year
  Sex: Male
  Weight: 65 kg

DRUGS (11)
  1. OXALIPLATIN [Suspect]
     Active Substance: OXALIPLATIN
     Indication: Gastric cancer
     Dosage: 221 MG, Q3W
     Route: 041
     Dates: start: 20220627, end: 20220719
  2. OXALIPLATIN [Suspect]
     Active Substance: OXALIPLATIN
     Dosage: 221 MG, Q3W
     Route: 041
     Dates: start: 20220818, end: 20220818
  3. DIOVAN [Suspect]
     Active Substance: VALSARTAN
     Indication: Hypertension
     Dosage: 80 MG, QD
     Route: 048
     Dates: start: 20220628, end: 20220808
  4. OMNIPAQUE [Suspect]
     Active Substance: IOHEXOL
     Indication: Computerised tomogram
     Dosage: UNK
     Route: 042
     Dates: start: 20220807, end: 20220807
  5. NIFEDIPINE [Concomitant]
     Active Substance: NIFEDIPINE
     Indication: Hypertension
     Dosage: 10 MG (IMMEDIATELY)
     Route: 048
     Dates: start: 20220608
  6. NIFEDIPINE [Concomitant]
     Active Substance: NIFEDIPINE
     Dosage: 30 MG, QD
     Route: 048
     Dates: start: 20220627
  7. AMLODIPINE [Concomitant]
     Active Substance: AMLODIPINE BESYLATE
     Indication: Hypertension
     Dosage: 5 MG, QD
     Route: 048
     Dates: start: 20220626
  8. LEUCOGEN [Concomitant]
     Active Substance: LEUCOGEN
     Indication: White blood cell count decreased
     Dosage: 80 MG, TID
     Route: 048
     Dates: start: 20220628
  9. ONDANSETRON [Concomitant]
     Active Substance: ONDANSETRON
     Indication: Gastric disorder
     Dosage: 8 MG, Q8H
     Route: 048
     Dates: start: 20220628
  10. ESOMEPRAZOLE SODIUM [Concomitant]
     Active Substance: ESOMEPRAZOLE SODIUM
     Indication: Prophylaxis
     Dosage: 40 MG, GTT, IMMEDIATE(ST)
     Route: 042
     Dates: start: 20220719
  11. DEXAMETHASONE [Concomitant]
     Active Substance: DEXAMETHASONE
     Indication: Prophylaxis
     Dosage: 5 MG, ST
     Route: 042
     Dates: start: 20220719

REACTIONS (5)
  - Acute kidney injury [Recovered/Resolved]
  - Polyuria [Unknown]
  - Thirst [Unknown]
  - Cough [Unknown]
  - Product use in unapproved indication [Unknown]

NARRATIVE: CASE EVENT DATE: 20220628
